FAERS Safety Report 7294244-1 (Version None)
Quarter: 2011Q1

REPORT INFORMATION
  Report Type: 
  Country: None (occurrence: None)
  Receive Date: 20110215
  Receipt Date: 20110208
  Transmission Date: 20110831
  Serious: Yes (Hospitalization)
  Sender: FDA-Public Use
  Company Number: IT-ABBOTT-11P-083-0703437-00

PATIENT
  Sex: Male

DRUGS (3)
  1. OMEPRAZOLE [Concomitant]
     Indication: PRODUCT USED FOR UNKNOWN INDICATION
     Dosage: 20 MG DAILY
     Route: 048
  2. MACLADIN [Suspect]
     Indication: HELICOBACTER INFECTION
     Route: 048
     Dates: start: 20101206, end: 20101211
  3. TRIMONASE [Concomitant]
     Indication: PRODUCT USED FOR UNKNOWN INDICATION

REACTIONS (5)
  - PRURITUS GENERALISED [None]
  - HEADACHE [None]
  - HEART RATE INCREASED [None]
  - FEELING HOT [None]
  - URTICARIA [None]
